FAERS Safety Report 20678926 (Version 1)
Quarter: 2022Q2

REPORT INFORMATION
  Report Type: Spontaneous
  Country: US (occurrence: US)
  Receive Date: 20220406
  Receipt Date: 20220406
  Transmission Date: 20220720
  Serious: No
  Sender: FDA-Public Use
  Company Number: US-PFIZER INC-2021901212

PATIENT
  Age: 59 Year
  Sex: Female
  Weight: 60.317 kg

DRUGS (1)
  1. INLYTA [Suspect]
     Active Substance: AXITINIB
     Indication: Renal cancer
     Dosage: 5 MG, 2X/DAY
     Route: 048
     Dates: start: 20210609

REACTIONS (4)
  - Nausea [Unknown]
  - Myalgia [Unknown]
  - Asthenia [Unknown]
  - Product dose omission issue [Unknown]
